FAERS Safety Report 10697236 (Version 1)
Quarter: 2015Q1

REPORT INFORMATION
  Report Type: Spontaneous
  Country: US (occurrence: None)
  Receive Date: 20150107
  Receipt Date: 20150107
  Transmission Date: 20150721
  Serious: No
  Sender: FDA-Public Use
  Company Number: None

PATIENT
  Age: 51 Year
  Sex: Male
  Weight: 72.58 kg

DRUGS (1)
  1. IMIQUIMOD. [Suspect]
     Active Substance: IMIQUIMOD
     Indication: SKIN PAPILLOMA
     Dosage: TWO-THREE X WEEKLY, APPLIED TO SURGACE USUALLY THE SKIN
     Dates: start: 20130101, end: 20150106

REACTIONS (2)
  - Dizziness [None]
  - Neuropathy peripheral [None]

NARRATIVE: CASE EVENT DATE: 20150106
